FAERS Safety Report 15703347 (Version 1)
Quarter: 2018Q4

REPORT INFORMATION
  Report Type: Spontaneous
  Country: US (occurrence: US)
  Receive Date: 20181209
  Receipt Date: 20181209
  Transmission Date: 20190205
  Serious: No
  Sender: FDA-Public Use
  Company Number: None

PATIENT
  Age: 34 Year
  Sex: Male
  Weight: 63 kg

DRUGS (5)
  1. LISINOPRIL 40 MG [Concomitant]
     Active Substance: LISINOPRIL
  2. OMEPRAZOLE 40 MG [Concomitant]
     Active Substance: OMEPRAZOLE
  3. SERTRALINE 50MG [Concomitant]
     Active Substance: SERTRALINE HYDROCHLORIDE
  4. CLONAZEPAM. [Suspect]
     Active Substance: CLONAZEPAM
     Indication: ANXIETY
     Dosage: ?          QUANTITY:1 TABLET(S);?
     Route: 048
     Dates: start: 20181207, end: 20181209
  5. ATORVASTIN 10MG GREENSTONE [Concomitant]
     Active Substance: ATORVASTATIN

REACTIONS (4)
  - Therapeutic response changed [None]
  - Therapeutic response decreased [None]
  - Product substitution issue [None]
  - Rash pruritic [None]

NARRATIVE: CASE EVENT DATE: 20181209
